FAERS Safety Report 9636334 (Version 2)
Quarter: 2013Q4

REPORT INFORMATION
  Report Type: Spontaneous
  Country: US (occurrence: US)
  Receive Date: 20131021
  Receipt Date: 20131126
  Transmission Date: 20140711
  Serious: Yes (Hospitalization)
  Sender: FDA-Public Use
  Company Number: US-UCBSA-100692

PATIENT
  Age: 69 Year
  Sex: Female
  Weight: 69.4 kg

DRUGS (12)
  1. VIMPAT [Suspect]
     Indication: CONVULSION
     Dosage: 400 MG/DAILY
  2. VIMPAT [Suspect]
     Indication: CONVULSION
     Dosage: 300 MG/DAILY
  3. VIMPAT [Suspect]
     Indication: CONVULSION
  4. LEVETIRACETAM [Concomitant]
  5. OMEPRAZOLE [Concomitant]
     Dosage: DAILY DOSE: 20 MG
  6. CALCIUM [Concomitant]
  7. MULTIVITAMIN [Concomitant]
     Dosage: TWICE DAILY
  8. VITAMIN D3 [Concomitant]
     Dosage: 5000 IU EVERY DAY
  9. ASPIRIN [Concomitant]
     Dosage: EVERY DAY
  10. VITAMIN B12 [Concomitant]
  11. CITALOPRAM [Concomitant]
     Dosage: 10 MG EVERY DAY
  12. HCTZ [Concomitant]
     Dosage: 25 MG EVERY DAY

REACTIONS (4)
  - Dizziness [Recovering/Resolving]
  - Tremor [Recovering/Resolving]
  - Gait disturbance [Recovering/Resolving]
  - Nasopharyngitis [Unknown]
